FAERS Safety Report 10358045 (Version 3)
Quarter: 2014Q3

REPORT INFORMATION
  Report Type: Spontaneous
  Country: US (occurrence: US)
  Receive Date: 20140801
  Receipt Date: 20140807
  Transmission Date: 20150326
  Serious: Yes (Other)
  Sender: FDA-Public Use
  Company Number: US-TEVA-442256USA

PATIENT
  Age: 69 Year
  Sex: Female

DRUGS (2)
  1. ESTRADIOL W/NORGESTIMATE [Suspect]
     Active Substance: ESTRADIOL\NORGESTIMATE
  2. ESTRADIOL W/NORGESTIMATE [Suspect]
     Active Substance: ESTRADIOL\NORGESTIMATE
     Indication: BACK DISORDER
     Dates: start: 2001

REACTIONS (6)
  - Hypoaesthesia [Unknown]
  - Muscle tightness [Unknown]
  - Drug dependence [Unknown]
  - Musculoskeletal stiffness [Unknown]
  - Muscle spasms [Unknown]
  - Back pain [Unknown]
